FAERS Safety Report 8159270-9 (Version None)
Quarter: 2012Q1

REPORT INFORMATION
  Report Type: 
  Country: None (occurrence: None)
  Receive Date: 20120223
  Receipt Date: 20120214
  Transmission Date: 20120608
  Serious: Yes (Hospitalization)
  Sender: FDA-Public Use
  Company Number: HU-ASTRAZENECA-2011SE54361

PATIENT
  Age: 31841 Day
  Sex: Male

DRUGS (11)
  1. ASPIRIN [Concomitant]
     Route: 048
     Dates: start: 20111004
  2. LOSARTAN POTASSIUM [Concomitant]
     Route: 048
     Dates: start: 20111012
  3. PLAVIX [Suspect]
     Indication: CORONARY ARTERY DISEASE
     Route: 048
     Dates: start: 20110706, end: 20110907
  4. HYDROCHLOROTHIAZIDE [Concomitant]
     Route: 048
     Dates: start: 20111012
  5. BISOPROLOL [Concomitant]
     Indication: CARDIOVASCULAR EVENT PROPHYLAXIS
     Route: 048
  6. PLAVIX [Suspect]
     Route: 048
     Dates: start: 20111004
  7. ATORVASTATIN [Concomitant]
     Indication: HYPERCHOLESTEROLAEMIA
     Route: 048
  8. HYDROCHLOROTHIAZIDE [Concomitant]
     Indication: HYPERTENSION
     Route: 048
     Dates: end: 20110907
  9. CLOPIDOGREL [Concomitant]
     Dates: start: 20110623
  10. LOSARTAN POTASSIUM [Concomitant]
     Indication: HYPERTENSION
     Route: 048
     Dates: end: 20110907
  11. ASPIRIN [Concomitant]
     Route: 048
     Dates: start: 20110623, end: 20110907

REACTIONS (1)
  - EROSIVE DUODENITIS [None]
